FAERS Safety Report 8865539 (Version 1)
Quarter: 2012Q4

REPORT INFORMATION
  Report Type: 
  Country: US (occurrence: US)
  Receive Date: 20121024
  Receipt Date: 20121024
  Transmission Date: 20130627
  Serious: No
  Sender: FDA-Public Use
  Company Number: US-AMGEN-USASP2012003651

PATIENT
  Age: 68 Year
  Sex: Male

DRUGS (7)
  1. ENBREL [Suspect]
     Indication: PRODUCT USED FOR UNKNOWN INDICATION
     Dosage: 50 mg, qwk
     Route: 058
  2. LISINOPRIL [Concomitant]
     Dosage: 2.5 mg, UNK
  3. AMLODIPINE [Concomitant]
     Dosage: 2.5 mg, UNK
  4. CENTRUM SILVER                     /01292501/ [Concomitant]
  5. ASPIRIN [Concomitant]
     Dosage: 81 mg, UNK
     Route: 048
  6. LIPITOR [Concomitant]
     Dosage: 20 mg, UNK
  7. NAPROXEN DELAYED RELEASE [Concomitant]
     Dosage: 375 mg, UNK

REACTIONS (1)
  - Injection site erythema [Recovered/Resolved]
